FAERS Safety Report 5503478-5 (Version None)
Quarter: 2007Q4

REPORT INFORMATION
  Report Type: 
  Country: None (occurrence: None)
  Receive Date: 20071031
  Receipt Date: 20071023
  Transmission Date: 20080405
  Serious: Yes (Hospitalization, Other)
  Sender: FDA-Public Use
  Company Number: US-ABBOTT-07P-163-0421944-00

PATIENT
  Sex: Female
  Weight: 51.302 kg

DRUGS (3)
  1. HUMIRA [Suspect]
     Indication: RHEUMATOID ARTHRITIS
     Route: 058
     Dates: start: 20060401, end: 20070526
  2. HUMIRA [Suspect]
     Route: 058
     Dates: start: 20040101, end: 20051022
  3. HUMIRA [Suspect]
     Route: 058
     Dates: start: 20071022

REACTIONS (2)
  - FEMUR FRACTURE [None]
  - ROAD TRAFFIC ACCIDENT [None]
